FAERS Safety Report 7563350-6 (Version None)
Quarter: 2011Q2

REPORT INFORMATION
  Report Type: 
  Country: None (occurrence: None)
  Receive Date: 20110622
  Receipt Date: 20110125
  Transmission Date: 20111010
  Serious: Yes (Hospitalization)
  Sender: FDA-Public Use
  Company Number: A0910477A

PATIENT
  Age: 75 Year
  Sex: Female

DRUGS (1)
  1. AVANDIA [Suspect]
     Indication: DIABETES MELLITUS
     Dosage: 2MG TWICE PER DAY
     Route: 048
     Dates: start: 20070702, end: 20100912

REACTIONS (4)
  - CHEST PAIN [None]
  - HEART RATE INCREASED [None]
  - CARDIAC FAILURE CONGESTIVE [None]
  - FLUID RETENTION [None]
